FAERS Safety Report 9455551 (Version 1)
Quarter: 2013Q3

REPORT INFORMATION
  Report Type: Spontaneous
  Country: US (occurrence: US)
  Receive Date: 20130813
  Receipt Date: 20130813
  Transmission Date: 20140515
  Serious: No
  Sender: FDA-Public Use
  Company Number: US-PFIZER INC-2013230458

PATIENT
  Age: 65 Year
  Sex: Male

DRUGS (5)
  1. DOXYCYCLINE CALCIUM [Suspect]
     Indication: TESTICULAR PAIN
     Dosage: UNK
     Dates: start: 2013
  2. DOXYCYCLINE CALCIUM [Suspect]
     Indication: TESTICULAR DISORDER
  3. FLUOROURACIL [Suspect]
     Indication: HYPERKERATOSIS
     Dosage: UNK, 2X/DAY
     Dates: start: 20130717, end: 2013
  4. TRIAMCINOLONE ACETONIDE [Suspect]
     Indication: TESTICULAR PAIN
     Dosage: UNK
     Dates: start: 2013
  5. TRIAMCINOLONE ACETONIDE [Suspect]
     Indication: TESTICULAR DISORDER

REACTIONS (3)
  - Testicular disorder [Not Recovered/Not Resolved]
  - Testicular pain [Not Recovered/Not Resolved]
  - Drug ineffective [Unknown]
